FAERS Safety Report 24257456 (Version 1)
Quarter: 2024Q3

REPORT INFORMATION
  Report Type: Spontaneous
  Country: CN (occurrence: CN)
  Receive Date: 20240828
  Receipt Date: 20240828
  Transmission Date: 20241017
  Serious: Yes (Other)
  Sender: STRIDES
  Company Number: CN-STRIDES ARCOLAB LIMITED-2024SP010696

PATIENT
  Age: 17 Year
  Sex: Female

DRUGS (8)
  1. PREDNISOLONE [Suspect]
     Active Substance: PREDNISOLONE
     Indication: Poisoning deliberate
     Dosage: 30 MILLIGRAM, QD
     Route: 048
  2. FUROSEMIDE [Suspect]
     Active Substance: FUROSEMIDE
     Indication: Diuretic therapy
     Dosage: UNK
     Route: 065
  3. GLYCERIN [Suspect]
     Active Substance: GLYCERIN
     Indication: Poisoning deliberate
     Dosage: UNK
     Route: 065
  4. MAGNESIUM SULFATE [Suspect]
     Active Substance: MAGNESIUM SULFATE\MAGNESIUM SULFATE HEPTAHYDRATE
     Indication: Poisoning deliberate
     Dosage: UNK
     Route: 054
  5. ESOMEPRAZOLE [Suspect]
     Active Substance: ESOMEPRAZOLE
     Indication: Poisoning deliberate
     Dosage: UNK
     Route: 042
  6. VITAMIN C [Suspect]
     Active Substance: ASCORBIC ACID
     Indication: Poisoning deliberate
     Dosage: UNK
     Route: 065
  7. MONTMORILLONITE [Suspect]
     Active Substance: MONTMORILLONITE
     Indication: Poisoning deliberate
     Dosage: UNK
     Route: 048
  8. METHYLPREDNISOLONE [Suspect]
     Active Substance: METHYLPREDNISOLONE
     Indication: Poisoning deliberate
     Dosage: 40 MILLIGRAM, QD
     Route: 042

REACTIONS (2)
  - Abortion spontaneous [Unknown]
  - Maternal exposure during pregnancy [Unknown]
